FAERS Safety Report 5673607-1 (Version None)
Quarter: 2008Q2

REPORT INFORMATION
  Report Type: 
  Country: None (occurrence: None)
  Receive Date: 20080225
  Receipt Date: 20070909
  Transmission Date: 20081010
  Serious: Yes (Hospitalization)
  Sender: FDA-Public Use
  Company Number: WAES 0709USA01039

PATIENT
  Age: 74 Year
  Sex: Male

DRUGS (3)
  1. ZOCOR [Suspect]
     Dosage: PO
     Route: 048
  2. FLOMAX [Concomitant]
  3. SYNTHROID [Concomitant]

REACTIONS (3)
  - ADVERSE EVENT [None]
  - LYME DISEASE [None]
  - MUSCLE SPASMS [None]
